FAERS Safety Report 9960609 (Version 1)
Quarter: 2014Q1

REPORT INFORMATION
  Report Type: Report from Study
  Country: US (occurrence: US)
  Receive Date: 20140305
  Receipt Date: 20140305
  Transmission Date: 20141002
  Serious: No
  Sender: FDA-Public Use
  Company Number: US-ABBVIE-13P-163-1108725-00

PATIENT
  Sex: Female

DRUGS (2)
  1. HUMIRA [Suspect]
     Indication: COLITIS ULCERATIVE
  2. ENTOCORT [Concomitant]
     Indication: COLITIS ULCERATIVE
     Dosage: 9 MG DAILY

REACTIONS (1)
  - Rash pruritic [Recovering/Resolving]
